FAERS Safety Report 10067590 (Version 3)
Quarter: 2014Q2

REPORT INFORMATION
  Report Type: Spontaneous
  Country: US (occurrence: US)
  Receive Date: 20140409
  Receipt Date: 20140508
  Transmission Date: 20141212
  Serious: Yes (Death)
  Sender: FDA-Public Use
  Company Number: US-009507513-1404USA000490

PATIENT
  Age: 71 Year
  Sex: Male

DRUGS (1)
  1. ISENTRESS [Suspect]
     Dosage: 400 MG, BID
     Route: 048

REACTIONS (10)
  - Death [Fatal]
  - Hypertension [Unknown]
  - AIDS dementia complex [Unknown]
  - Nephropathy [Unknown]
  - Chronic obstructive pulmonary disease [Unknown]
  - Type 2 diabetes mellitus [Unknown]
  - Cachexia [Unknown]
  - Pneumonia aspiration [Unknown]
  - Abnormal behaviour [Unknown]
  - Weight decreased [Unknown]
